FAERS Safety Report 8109569-7 (Version None)
Quarter: 2012Q1

REPORT INFORMATION
  Report Type: 
  Country: None (occurrence: None)
  Receive Date: 20120202
  Receipt Date: 20120113
  Transmission Date: 20120608
  Serious: No
  Sender: FDA-Public Use
  Company Number: US-AMGEN-USASP2011013118

PATIENT
  Age: 49 Year
  Sex: Female

DRUGS (1)
  1. ENBREL [Suspect]
     Indication: RHEUMATOID ARTHRITIS
     Dosage: 50 MG, QWK
     Dates: start: 20101115

REACTIONS (8)
  - INFLAMMATION [None]
  - NODULE [None]
  - MUSCULOSKELETAL PAIN [None]
  - INJECTION SITE HAEMATOMA [None]
  - PAIN IN EXTREMITY [None]
  - JOINT SWELLING [None]
  - ARTHRALGIA [None]
  - INJECTION SITE HAEMORRHAGE [None]
